FAERS Safety Report 19120187 (Version 26)
Quarter: 2021Q3

REPORT INFORMATION
  Report Type: Spontaneous
  Country: IE (occurrence: GB)
  Receive Date: 20210412
  Receipt Date: 20210924
  Transmission Date: 20211014
  Serious: Yes (Disabling, Other)
  Sender: FDA-Public Use
  Company Number: IE-SUN PHARMACEUTICAL INDUSTRIES LTD-2021RR-290480

PATIENT
  Age: 24 Year
  Sex: Male

DRUGS (21)
  1. TRAZODONE [Suspect]
     Active Substance: TRAZODONE HYDROCHLORIDE
     Indication: ANTIDEPRESSANT THERAPY
     Dosage: 100 MILLIGRAM, QD (INCREASED TO 100 MG DAILY)
     Route: 048
     Dates: start: 2015, end: 201507
  2. ESCITALOPRAM [Suspect]
     Active Substance: ESCITALOPRAM OXALATE
     Indication: PRODUCT USED FOR UNKNOWN INDICATION
  3. RISPERIDONE. [Suspect]
     Active Substance: RISPERIDONE
     Indication: ILL-DEFINED DISORDER
     Dosage: UNKNOWN
     Route: 048
  4. MIRTAZAPINE HYDROCHLORIDE [Suspect]
     Active Substance: MIRTAZAPINE
     Indication: ANTIDEPRESSANT THERAPY
     Dosage: 45 MILLIGRAM (7.5MG?UPTITRATED YO 45MG DAILY THEN REDUCED TDOWN TO STOP )
     Route: 048
     Dates: end: 2015
  5. MIRTAZAPINE. [Suspect]
     Active Substance: MIRTAZAPINE
     Indication: PRODUCT USED FOR UNKNOWN INDICATION
  6. SERTRALINE [Suspect]
     Active Substance: SERTRALINE HYDROCHLORIDE
     Indication: PRODUCT USED FOR UNKNOWN INDICATION
  7. SERTRALINE [Suspect]
     Active Substance: SERTRALINE HYDROCHLORIDE
     Indication: PRODUCT USED FOR UNKNOWN INDICATION
  8. SERTRALINE [Suspect]
     Active Substance: SERTRALINE HYDROCHLORIDE
     Indication: ANTIDEPRESSANT THERAPY
     Dosage: 100 MILLIGRAM, UNK
     Route: 048
     Dates: start: 2014
  9. SERTRALINE [Suspect]
     Active Substance: SERTRALINE HYDROCHLORIDE
     Dosage: 50 MILLIGRAM, UNK, 50 MG INITIALLY THEN 100 MG
     Route: 048
     Dates: start: 2014
  10. TEMAZEPAM. [Suspect]
     Active Substance: TEMAZEPAM
     Indication: POOR QUALITY SLEEP
     Dosage: 10 MILLIGRAM, DAILY, 10 MG DAILY
     Route: 048
  11. TRAZODONE HYDROCHLORIDE. [Suspect]
     Active Substance: TRAZODONE HYDROCHLORIDE
     Indication: PRODUCT USED FOR UNKNOWN INDICATION
  12. TRAZODONE HYDROCHLORIDE. [Suspect]
     Active Substance: TRAZODONE HYDROCHLORIDE
     Indication: PRODUCT USED FOR UNKNOWN INDICATION
  13. CIPRALEX [Suspect]
     Active Substance: ESCITALOPRAM OXALATE
     Indication: ANTIDEPRESSANT THERAPY
     Dosage: 10 MILLIGRAM, DAILY, 10 MG DAILY
     Route: 048
     Dates: start: 201507, end: 201509
  14. TRAZODONE [Suspect]
     Active Substance: TRAZODONE HYDROCHLORIDE
     Dosage: 100 MILLIGRAM
     Route: 048
  15. SERTRALINE [Suspect]
     Active Substance: SERTRALINE HYDROCHLORIDE
     Dosage: 100 MILLIGRAM
     Route: 048
     Dates: start: 2014
  16. CITALOPRAM [Suspect]
     Active Substance: CITALOPRAM HYDROBROMIDE
     Indication: ILL-DEFINED DISORDER
     Dosage: 10 MILLIGRAM, UNK, 10 MG INITIALLY
     Route: 048
     Dates: start: 201507
  17. MIRTAZAPINE HYDROCHLORIDE [Suspect]
     Active Substance: MIRTAZAPINE
     Dosage: 7.5 MILLIGRAM, UNK, 7.5MG?UPTITRATED TO 45MG DAILY THEN REDUCED DOWN TO STOP
     Route: 048
     Dates: start: 2014, end: 2015
  18. TRAZODONE [Suspect]
     Active Substance: TRAZODONE HYDROCHLORIDE
     Indication: POOR QUALITY SLEEP
     Dosage: 50 MILLIGRAM, UNK, 50MG INITAILLY INCREASED TO 100MG DAILY THEN REDUCED TO 50MG BEFORE STOPPING
     Route: 048
     Dates: start: 2015, end: 201507
  19. MIRTAZAPINE HYDROCHLORIDE [Suspect]
     Active Substance: MIRTAZAPINE
     Dosage: 7.5 MG, UP TITRATED TO 45MG DAILY THEN REDUCED DOWN TO STOP
     Route: 065
     Dates: start: 2014
  20. TRAZODONE [Suspect]
     Active Substance: TRAZODONE HYDROCHLORIDE
     Dosage: 50 MILLIGRAM (THEN REDUCED TO 50 MG BEFORE STOPPING )
     Route: 048
     Dates: end: 201507
  21. MIRTAZAPINE. [Suspect]
     Active Substance: MIRTAZAPINE
     Indication: PRODUCT USED FOR UNKNOWN INDICATION

REACTIONS (24)
  - Mood swings [Unknown]
  - Loss of libido [Unknown]
  - Feeling abnormal [Unknown]
  - Confusional state [Unknown]
  - Sedation [Unknown]
  - Hallucination, visual [Unknown]
  - Nausea [Unknown]
  - Tachyphrenia [Unknown]
  - Somnolence [Unknown]
  - Suicidal ideation [Unknown]
  - Homicidal ideation [Unknown]
  - Product use in unapproved indication [Unknown]
  - Paranoia [Unknown]
  - Anger [Unknown]
  - Agitation [Unknown]
  - Suicide attempt [Unknown]
  - Irritability [Unknown]
  - Hallucination, auditory [Unknown]
  - Intrusive thoughts [Unknown]
  - Psychotic disorder [Unknown]
  - Amnesia [Unknown]
  - Insomnia [Unknown]
  - Headache [Unknown]
  - Aggression [Unknown]
